FAERS Safety Report 6682536-6 (Version None)
Quarter: 2010Q2

REPORT INFORMATION
  Report Type: 
  Country: None (occurrence: None)
  Receive Date: 20100415
  Receipt Date: 20100406
  Transmission Date: 20101027
  Serious: Yes (Hospitalization)
  Sender: FDA-Public Use
  Company Number: CN-BAYER-201021435GPV

PATIENT
  Age: 59 Year
  Sex: Male

DRUGS (1)
  1. ULTRAVIST (PHARMACY BULK) [Suspect]
     Indication: ANGIOGRAM
     Route: 013
     Dates: start: 20051110, end: 20051110

REACTIONS (5)
  - BLINDNESS UNILATERAL [None]
  - DIZZINESS [None]
  - POSITIVE ROMBERGISM [None]
  - VERTEBRAL ARTERY OCCLUSION [None]
  - VOMITING [None]
